FAERS Safety Report 8691065 (Version 6)
Quarter: 2012Q4

REPORT INFORMATION
  Report Type: 
  Country: US (occurrence: US)
  Receive Date: 20120730
  Receipt Date: 20120829
  Transmission Date: 20130627
  Serious: Yes (Life-Threatening, Hospitalization, Other)
  Sender: FDA-Public Use
  Company Number: US-JNJFOC-20120713846

PATIENT
  Age: 71 Year
  Sex: Male
  Weight: 116.58 kg

DRUGS (12)
  1. XARELTO [Suspect]
     Indication: CEREBROVASCULAR ACCIDENT PROPHYLAXIS
     Dosage: started between the 19th and the 26th of june
     Route: 048
     Dates: start: 201206
  2. XARELTO [Suspect]
     Indication: ATRIAL FIBRILLATION
     Dosage: started between the 19th and the 26th of june
     Route: 048
     Dates: start: 201206
  3. PAIN MEDICATION [Concomitant]
  4. MELOXICAM [Concomitant]
     Route: 048
  5. FUROSEMIDE [Concomitant]
     Route: 048
  6. LIPITOR [Concomitant]
     Route: 048
  7. LOSARTAN [Concomitant]
     Route: 048
  8. SPIRONOLACTONE [Concomitant]
  9. LYRICA [Concomitant]
     Route: 048
  10. PROTONIX [Concomitant]
  11. FENTANYL [Concomitant]
     Indication: PAIN
  12. HYDROCODONE/APAP [Concomitant]
     Dosage: as needed

REACTIONS (4)
  - Renal failure [Unknown]
  - Cardiac tamponade [Recovered/Resolved]
  - Pulmonary oedema [Unknown]
  - Pericardial effusion [Recovered/Resolved]
